FAERS Safety Report 18567571 (Version 2)
Quarter: 2020Q4

REPORT INFORMATION
  Report Type: Spontaneous
  Country: PL (occurrence: PL)
  Receive Date: 20201202
  Receipt Date: 20201203
  Transmission Date: 20210114
  Serious: Yes (Other)
  Sender: FDA-Public Use
  Company Number: PL-JNJFOC-20201149231

PATIENT

DRUGS (1)
  1. PARACETAMOL [Suspect]
     Active Substance: ACETAMINOPHEN
     Indication: PRODUCT USED FOR UNKNOWN INDICATION
     Dosage: PRODUCT QUANTITY: 1
     Route: 065

REACTIONS (4)
  - Inflammatory marker increased [Unknown]
  - Neutropenia [Unknown]
  - Creatinine renal clearance decreased [Unknown]
  - Cough [Unknown]
